FAERS Safety Report 17156114 (Version 1)
Quarter: 2019Q4

REPORT INFORMATION
  Report Type: Spontaneous
  Country: US (occurrence: US)
  Receive Date: 20191216
  Receipt Date: 20191216
  Transmission Date: 20200122
  Serious: Yes (Other)
  Sender: FDA-Public Use
  Company Number: US-ROCHE-2379968

PATIENT
  Age: 69 Year
  Sex: Female

DRUGS (5)
  1. METOPROLOL. [Concomitant]
     Active Substance: METOPROLOL
  2. ELIQUIS [Concomitant]
     Active Substance: APIXABAN
  3. ZELBORAF [Suspect]
     Active Substance: VEMURAFENIB
     Indication: COLON CANCER
     Route: 048
     Dates: start: 20190703
  4. ZOFRAN [Concomitant]
     Active Substance: ONDANSETRON HYDROCHLORIDE
  5. K-DUR [Concomitant]
     Active Substance: POTASSIUM CHLORIDE

REACTIONS (3)
  - Electrocardiogram QT prolonged [Unknown]
  - Weight decreased [Unknown]
  - Syncope [Unknown]

NARRATIVE: CASE EVENT DATE: 20190801
